FAERS Safety Report 14256295 (Version 2)
Quarter: 2017Q4

REPORT INFORMATION
  Report Type: Spontaneous
  Country: JP (occurrence: JP)
  Receive Date: 20171206
  Receipt Date: 20171221
  Transmission Date: 20180321
  Serious: Yes (Hospitalization)
  Sender: FDA-Public Use
  Company Number: JP-SA-2017SA244472

PATIENT
  Age: 69 Year
  Sex: Male
  Weight: 62 kg

DRUGS (12)
  1. ACELIO [Concomitant]
     Active Substance: ACETAMINOPHEN
     Dosage: FROM: 18-APR-2017
     Route: 065
  2. ROCEPHIN [Concomitant]
     Active Substance: CEFTRIAXONE SODIUM
     Route: 041
     Dates: start: 20170418
  3. CALONAL [Concomitant]
     Active Substance: ACETAMINOPHEN
     Dosage: FROM: 18-APR-2017
     Route: 065
     Dates: end: 20170419
  4. CRESTOR [Concomitant]
     Active Substance: ROSUVASTATIN CALCIUM
     Route: 065
     Dates: end: 20170419
  5. LAC-B [Concomitant]
     Active Substance: BIFIDOBACTERIUM SPP.
     Dosage: FINE GRANULES
     Route: 065
     Dates: end: 20170419
  6. NAUZELIN [Concomitant]
     Active Substance: DOMPERIDONE
     Dosage: FROM: 18-APR-2017
     Route: 065
     Dates: end: 20170419
  7. CRAVIT [Suspect]
     Active Substance: LEVOFLOXACIN
     Indication: UPPER RESPIRATORY TRACT INFLAMMATION
     Dosage: FROM: 18-APR-2017
     Route: 048
     Dates: end: 20170419
  8. AMLODIPINE BESILATE [Concomitant]
     Active Substance: AMLODIPINE BESYLATE
     Dosage: ORODISPERSIBLE TABLET
     Route: 065
     Dates: end: 20170419
  9. CLARITHROMYCIN. [Concomitant]
     Active Substance: CLARITHROMYCIN
     Route: 065
     Dates: end: 20170419
  10. ORADOL [Concomitant]
     Dosage: PASTILLE; FROM: 18-APR-2017
     Route: 065
     Dates: end: 20170419
  11. ETHAMBUTOL [Suspect]
     Active Substance: ETHAMBUTOL HYDROCHLORIDE
     Indication: ATYPICAL MYCOBACTERIAL INFECTION
     Route: 048
     Dates: end: 20170419
  12. RIFADIN [Suspect]
     Active Substance: RIFAMPIN
     Indication: ATYPICAL MYCOBACTERIAL INFECTION
     Route: 048
     Dates: end: 20170419

REACTIONS (6)
  - Hepatic function abnormal [Unknown]
  - Disseminated intravascular coagulation [Unknown]
  - Diarrhoea [Unknown]
  - Stevens-Johnson syndrome [Recovered/Resolved]
  - Rhabdomyolysis [Unknown]
  - Pyrexia [Unknown]

NARRATIVE: CASE EVENT DATE: 20170417
